FAERS Safety Report 6528543-5 (Version None)
Quarter: 2009Q4

REPORT INFORMATION
  Report Type: 
  Country: None (occurrence: None)
  Receive Date: 20091231
  Receipt Date: 20091217
  Transmission Date: 20100525
  Serious: Yes (Death)
  Sender: FDA-Public Use
  Company Number: 2009278720

PATIENT
  Age: 77 Year
  Sex: Female

DRUGS (9)
  1. FRAGMIN [Suspect]
     Indication: THROMBOSIS PROPHYLAXIS
     Dosage: 5000 IU, DAILY, SUBCUTANEOUS
     Route: 058
     Dates: start: 20090716, end: 20090719
  2. METFORMIN HCL [Concomitant]
  3. ATENOLOL [Concomitant]
  4. ZANEDIP (LERCANIDIPINE HYDROCHLORIDE) [Concomitant]
  5. OLMEGAN (HYDROCHLOROTHIAZIDE, OLMESARTAN) [Concomitant]
  6. LANDOX (LANSOPRAZOLE) [Concomitant]
  7. NOVOMIX (INSULIN ASPART) [Concomitant]
  8. CARDIO ASPIRINA (ACETYLSALICYLIC ACID) [Concomitant]
  9. EUTIROX (LEVOTHYROXINE) [Concomitant]

REACTIONS (2)
  - PULMONARY EMBOLISM [None]
  - PULMONARY INFARCTION [None]
